FAERS Safety Report 7267288-3 (Version None)
Quarter: 2011Q1

REPORT INFORMATION
  Report Type: 
  Country: None (occurrence: None)
  Receive Date: 20110121
  Receipt Date: 20110110
  Transmission Date: 20110831
  Serious: Yes (Hospitalization)
  Sender: FDA-Public Use
  Company Number: 2011SP001330

PATIENT
  Sex: Male

DRUGS (1)
  1. INTRON A [Suspect]
     Indication: PRODUCT USED FOR UNKNOWN INDICATION
     Dosage: INTRON A (INTERFERON ALFA-2B), IV, 16 MIU
     Route: 042
     Dates: start: 20100719, end: 20100813

REACTIONS (11)
  - DEHYDRATION [None]
  - MEMORY IMPAIRMENT [None]
  - CHILLS [None]
  - FATIGUE [None]
  - NAUSEA [None]
  - VOMITING [None]
  - PAIN [None]
  - BODY TEMPERATURE INCREASED [None]
  - MALIGNANT MELANOMA [None]
  - NEOPLASM RECURRENCE [None]
  - DISTURBANCE IN ATTENTION [None]
